FAERS Safety Report 5098998-4 (Version None)
Quarter: 2006Q3

REPORT INFORMATION
  Report Type: 
  Country: None (occurrence: None)
  Receive Date: 20060731
  Receipt Date: 20050921
  Transmission Date: 20061208
  Serious: Yes (Other)
  Sender: FDA-Public Use
  Company Number: 217955

PATIENT
  Sex: Female

DRUGS (3)
  1. RITUXAN [Suspect]
     Indication: NON-HODGKIN'S LYMPHOMA
  2. CHEMOTHERAPY NOS (ANTINEOPLASTIC AGENT NOS) [Concomitant]
  3. RADIOTHERAPY (RADIATION THERAPY) [Concomitant]

REACTIONS (2)
  - ALVEOLITIS ALLERGIC [None]
  - INTERSTITIAL LUNG DISEASE [None]
